FAERS Safety Report 6358902-5 (Version None)
Quarter: 2009Q3

REPORT INFORMATION
  Report Type: 
  Country: None (occurrence: None)
  Receive Date: 20090916
  Receipt Date: 20090903
  Transmission Date: 20100115
  Serious: No
  Sender: FDA-Public Use
  Company Number: US-ABBOTT-09P-163-0594575-00

PATIENT
  Sex: Male

DRUGS (2)
  1. TRILIPIX [Suspect]
     Indication: HYPERLIPIDAEMIA
  2. TRILIPIX [Suspect]
     Indication: HYPERTRIGLYCERIDAEMIA

REACTIONS (3)
  - CHEST PAIN [None]
  - FATIGUE [None]
  - PALPITATIONS [None]
